FAERS Safety Report 8974218 (Version 2)
Quarter: 2013Q1

REPORT INFORMATION
  Report Type: Spontaneous
  Country: DE (occurrence: None)
  Receive Date: 20121211
  Receipt Date: 20121231
  Transmission Date: 20140127
  Serious: Yes (Hospitalization, Other)
  Sender: FDA-Public Use
  Company Number: ACO_33275_2012

PATIENT
  Age: 52 Year
  Sex: Male

DRUGS (2)
  1. FAMPYRA (DALFAMPRIDINE) TABLET, 10MG [Suspect]
     Route: 048
     Dates: start: 201205, end: 20121111
  2. TYSABRI (NATALIZUMAB) [Concomitant]

REACTIONS (1)
  - Convulsion [None]
